FAERS Safety Report 9201032 (Version 1)
Quarter: 2013Q1

REPORT INFORMATION
  Report Type: Spontaneous
  Country: US (occurrence: None)
  Receive Date: 20130327
  Receipt Date: 20130327
  Transmission Date: 20140127
  Serious: Yes (Other)
  Sender: FDA-Public Use
  Company Number: ADR-2013-00483

PATIENT
  Sex: Female

DRUGS (1)
  1. BACLOFEN INTRATHECAL [Suspect]
     Indication: MUSCLE SPASTICITY
     Route: 037

REACTIONS (9)
  - Skin discolouration [None]
  - Scab [None]
  - Decubitus ulcer [None]
  - Pain [None]
  - Aphagia [None]
  - Malnutrition [None]
  - Back pain [None]
  - Muscle spasticity [None]
  - Unevaluable event [None]
